FAERS Safety Report 13320011 (Version 1)
Quarter: 2017Q1

REPORT INFORMATION
  Report Type: Spontaneous
  Country: US (occurrence: US)
  Receive Date: 20170310
  Receipt Date: 20170310
  Transmission Date: 20170428
  Serious: No
  Sender: FDA-Public Use
  Company Number: US-WEST-WARD PHARMACEUTICALS CORP.-US-H14001-16-02515

PATIENT
  Sex: Female
  Weight: 102.15 kg

DRUGS (1)
  1. BUTHORPHANOL TARTARATE NASAL SPRAY [Suspect]
     Active Substance: BUTORPHANOL
     Indication: HEADACHE
     Route: 045
     Dates: start: 20160728

REACTIONS (7)
  - Feeling drunk [Recovered/Resolved]
  - Incorrect route of drug administration [Recovered/Resolved]
  - Dizziness [Recovered/Resolved]
  - Presyncope [Recovered/Resolved]
  - Overdose [Recovered/Resolved]
  - Dysphagia [Recovered/Resolved]
  - Feeling abnormal [Recovered/Resolved]

NARRATIVE: CASE EVENT DATE: 2016
